FAERS Safety Report 8321065-0 (Version None)
Quarter: 2012Q2

REPORT INFORMATION
  Report Type: 
  Country: None (occurrence: None)
  Receive Date: 20120430
  Receipt Date: 20120425
  Transmission Date: 20120825
  Serious: Yes (Other)
  Sender: FDA-Public Use
  Company Number: PHHY2012GB007709

PATIENT
  Age: 49 Year
  Sex: Female
  Weight: 71 kg

DRUGS (10)
  1. TRAMADOL HCL [Suspect]
     Dosage: 100 MG, PRN
     Route: 048
     Dates: start: 20120118
  2. FLUOXETINE [Suspect]
  3. MULTI-VITAMIN [Concomitant]
     Indication: ALCOHOL USE
     Dosage: UNK
     Route: 048
     Dates: start: 20111205
  4. FLUOXETINE [Suspect]
     Dosage: UNK
     Dates: start: 20120117
  5. FOLIC ACID [Concomitant]
  6. PARACETAMOL [Concomitant]
     Indication: PAIN
     Dosage: 1 G, QD
     Route: 048
  7. TRAMADOL HCL [Suspect]
     Indication: PAIN
     Dosage: 50-100MG FOUR TIMES A DAY
     Dates: start: 20111203
  8. TRAMADOL HCL [Suspect]
     Dosage: 50 MG, PRN
     Dates: start: 20120112, end: 20120117
  9. PABRINEX [Concomitant]
     Indication: ALCOHOL USE
     Dosage: UNK
     Dates: start: 20111202, end: 20111205
  10. THIAMINE HCL [Concomitant]
     Indication: ALCOHOL USE
     Dosage: 200 MG, UNK
     Route: 048
     Dates: start: 20111205

REACTIONS (2)
  - HYPOGLYCAEMIA [None]
  - CONVULSION [None]
